FAERS Safety Report 9617909 (Version 1)
Quarter: 2013Q4

REPORT INFORMATION
  Report Type: Spontaneous
  Country: NL (occurrence: NL)
  Receive Date: 20131011
  Receipt Date: 20131011
  Transmission Date: 20140711
  Serious: Yes (Hospitalization)
  Sender: FDA-Public Use
  Company Number: NL-BAYER-2013-123491

PATIENT
  Age: 38 Year
  Sex: 0

DRUGS (1)
  1. ULTRAVIST-300 [Suspect]
     Indication: ABDOMEN SCAN
     Dosage: 120 ML, ONCE
     Route: 042
     Dates: start: 20131011, end: 20131011

REACTIONS (3)
  - Vomiting [Not Recovered/Not Resolved]
  - Oropharyngeal discomfort [Not Recovered/Not Resolved]
  - Sense of oppression [Not Recovered/Not Resolved]
